FAERS Safety Report 7305317-9 (Version None)
Quarter: 2011Q1

REPORT INFORMATION
  Report Type: 
  Country: None (occurrence: None)
  Receive Date: 20110210
  Receipt Date: 20110126
  Transmission Date: 20110831
  Serious: Yes (Hospitalization)
  Sender: FDA-Public Use
  Company Number: 023134

PATIENT
  Sex: Male

DRUGS (3)
  1. BELOC-ZOC COMP [Concomitant]
  2. LISINOPRIL [Concomitant]
  3. KEPPRA [Suspect]
     Dosage: (1000 MG BID, 1000-0-1000MG) (1250 MG, 500-0-750 MG) (500 MG BID, 500-0-500MG)

REACTIONS (21)
  - DRUG INEFFECTIVE [None]
  - GAIT DISTURBANCE [None]
  - CONVULSION [None]
  - FATIGUE [None]
  - WEIGHT DECREASED [None]
  - DYSPNOEA [None]
  - DISTURBANCE IN ATTENTION [None]
  - GINGIVAL SWELLING [None]
  - IRRITABILITY [None]
  - DIZZINESS [None]
  - WEIGHT INCREASED [None]
  - TACHYCARDIA [None]
  - AGGRESSION [None]
  - TREMOR [None]
  - CONDITION AGGRAVATED [None]
  - SOMNOLENCE [None]
  - HEADACHE [None]
  - HYPOAESTHESIA [None]
  - ASTHENIA [None]
  - HEMIPARESIS [None]
  - ACNE [None]
